FAERS Safety Report 15999053 (Version 1)
Quarter: 2019Q1

REPORT INFORMATION
  Report Type: Spontaneous
  Country: US (occurrence: US)
  Receive Date: 20190225
  Receipt Date: 20190225
  Transmission Date: 20190418
  Serious: No
  Sender: FDA-Public Use
  Company Number: US-009507513-1902USA001586

PATIENT
  Age: 73 Year
  Sex: Male

DRUGS (1)
  1. JANUMET [Suspect]
     Active Substance: METFORMIN HYDROCHLORIDE\SITAGLIPTIN PHOSPHATE
     Indication: DIABETES MELLITUS
     Dosage: ONE 50/500 MG TABLET, BID (ONCE IN THE MORNING AND ONCE AT NIGHT)
     Route: 048
     Dates: start: 201702, end: 20190129

REACTIONS (7)
  - Pruritus [Unknown]
  - Skin exfoliation [Unknown]
  - Rash generalised [Recovering/Resolving]
  - Pain [Unknown]
  - Insomnia [Unknown]
  - Scratch [Unknown]
  - Dry skin [Unknown]

NARRATIVE: CASE EVENT DATE: 201802
